FAERS Safety Report 17114597 (Version 2)
Quarter: 2019Q4

REPORT INFORMATION
  Report Type: Spontaneous
  Country: CO (occurrence: CO)
  Receive Date: 20191205
  Receipt Date: 20191210
  Transmission Date: 20200122
  Serious: Yes (Other)
  Sender: FDA-Public Use
  Company Number: CO-MACLEODS PHARMACEUTICALS US LTD-MAC2019023992

PATIENT

DRUGS (3)
  1. AMOXICILLIN. [Concomitant]
     Active Substance: AMOXICILLIN
     Indication: HELICOBACTER INFECTION
     Dosage: 500 MILLIGRAM, TID
     Route: 065
  2. LANSOPRAZOLE. [Concomitant]
     Active Substance: LANSOPRAZOLE
     Indication: HELICOBACTER INFECTION
     Dosage: 40 MILLIGRAM, QD
     Route: 065
  3. LEVOFLOXACIN TABLET [Suspect]
     Active Substance: LEVOFLOXACIN
     Indication: HELICOBACTER INFECTION
     Dosage: 1 GRAM, BID
     Route: 048

REACTIONS (3)
  - Arthralgia [Recovered/Resolved]
  - Arthropathy [Recovered/Resolved]
  - Myalgia [Recovered/Resolved]
